FAERS Safety Report 13087934 (Version 2)
Quarter: 2017Q1

REPORT INFORMATION
  Report Type: Spontaneous
  Country: GB (occurrence: GB)
  Receive Date: 20170105
  Receipt Date: 20170112
  Transmission Date: 20170428
  Serious: Yes (Other)
  Sender: FDA-Public Use
  Company Number: GB-TEVA-726133ACC

PATIENT
  Sex: Female

DRUGS (4)
  1. CERELLE [Suspect]
     Active Substance: DESOGESTREL
     Indication: CONTRACEPTION
  2. DEPO-PROVERA [Suspect]
     Active Substance: MEDROXYPROGESTERONE ACETATE
     Indication: CONTRACEPTION
  3. PROGESTERONE. [Suspect]
     Active Substance: PROGESTERONE
     Indication: CONTRACEPTION
  4. CERAZETTE [Suspect]
     Active Substance: DESOGESTREL
     Indication: CONTRACEPTION

REACTIONS (3)
  - Product use issue [Unknown]
  - Dysmenorrhoea [Unknown]
  - Menorrhagia [Unknown]
